FAERS Safety Report 6741296-0 (Version None)
Quarter: 2010Q2

REPORT INFORMATION
  Report Type: 
  Country: None (occurrence: None)
  Receive Date: 20100524
  Receipt Date: 20100517
  Transmission Date: 20101027
  Serious: Yes (Hospitalization)
  Sender: FDA-Public Use
  Company Number: DSU-2010-02176

PATIENT
  Age: 84 Year
  Sex: Female
  Weight: 63.9572 kg

DRUGS (6)
  1. BENICAR [Suspect]
     Indication: HYPERTENSION
     Dosage: 20 MG (20 MG, QAM) PER ORAL
     Route: 048
     Dates: start: 20080101, end: 20100201
  2. BENICAR [Suspect]
     Indication: HYPERTENSION
     Dosage: 20 MG (20 MG, QAM) PER ORAL
     Route: 048
     Dates: start: 20100201, end: 20100515
  3. UNSPECIFIED BLOOD PRESSURE MEDICATION (ANTIHYPERTENSIVES) [Concomitant]
  4. LEVOXYL [Concomitant]
  5. TYLENOL (PARACETAMOL) (PARACETAMOL) [Concomitant]
  6. MULTI-VITAMINS [Concomitant]

REACTIONS (5)
  - NAUSEA [None]
  - NO THERAPEUTIC RESPONSE [None]
  - VERTIGO [None]
  - VISION BLURRED [None]
  - WEIGHT INCREASED [None]
